FAERS Safety Report 9058432 (Version 4)
Quarter: 2014Q1

REPORT INFORMATION
  Report Type: Spontaneous
  Country: JP (occurrence: None)
  Receive Date: 20130117
  Receipt Date: 20140115
  Transmission Date: 20141002
  Serious: Yes (Death)
  Sender: FDA-Public Use
  Company Number: ADR-2013-00049

PATIENT
  Sex: Female

DRUGS (1)
  1. GABALON [Suspect]

REACTIONS (3)
  - Pneumonia [None]
  - Blood pressure decreased [None]
  - Blood pressure systolic increased [None]
